FAERS Safety Report 8564493-0 (Version None)
Quarter: 2012Q3

REPORT INFORMATION
  Report Type: 
  Country: None (occurrence: None)
  Receive Date: 20120803
  Receipt Date: 20120730
  Transmission Date: 20120928
  Serious: Yes (Hospitalization)
  Sender: FDA-Public Use
  Company Number: BE-PFIZER INC-2012185786

PATIENT
  Sex: Male
  Weight: 91.3 kg

DRUGS (1)
  1. GENOTROPIN [Suspect]
     Indication: HYPOPITUITARISM
     Dosage: 0.2 MG/DAY, 7 INJECTIONS/WEEK
     Route: 058
     Dates: start: 20061109, end: 20081212

REACTIONS (1)
  - SLEEP DISORDER [None]
